APPROVED DRUG PRODUCT: RADICAVA
Active Ingredient: EDARAVONE
Strength: 30MG/100ML (0.3MG/ML)
Dosage Form/Route: SOLUTION;INTRAVENOUS
Application: N209176 | Product #001
Applicant: TANABE PHARMA CORP
Approved: May 5, 2017 | RLD: Yes | RS: No | Type: DISCN